FAERS Safety Report 9153294 (Version 2)
Quarter: 2013Q2

REPORT INFORMATION
  Report Type: Spontaneous
  Country: DE (occurrence: DE)
  Receive Date: 20130311
  Receipt Date: 20130628
  Transmission Date: 20140414
  Serious: Yes (Hospitalization)
  Sender: FDA-Public Use
  Company Number: DE-BIOGENIDEC-2013BI022385

PATIENT
  Age: 48 Year
  Sex: Female

DRUGS (3)
  1. AVONEX [Suspect]
     Indication: MULTIPLE SCLEROSIS
     Route: 030
     Dates: start: 201108
  2. PARACETAMOL [Concomitant]
     Indication: PROPHYLAXIS
     Dates: start: 201108
  3. IBUPROFEN [Concomitant]
     Indication: PROPHYLAXIS
     Dates: start: 20110801

REACTIONS (5)
  - Trigeminal neuralgia [Recovered/Resolved]
  - Fall [Recovered/Resolved with Sequelae]
  - Injury associated with device [Recovered/Resolved with Sequelae]
  - Injection site induration [Not Recovered/Not Resolved]
  - Liver function test abnormal [Not Recovered/Not Resolved]
